FAERS Safety Report 9621458 (Version 1)
Quarter: 2013Q4

REPORT INFORMATION
  Report Type: Spontaneous
  Country: US (occurrence: US)
  Receive Date: 20131015
  Receipt Date: 20131015
  Transmission Date: 20140711
  Serious: No
  Sender: FDA-Public Use
  Company Number: US-PFIZER INC-2013289891

PATIENT
  Age: 47 Year
  Sex: Female

DRUGS (2)
  1. PREMARIN [Suspect]
     Indication: VULVOVAGINAL DRYNESS
     Dosage: UNK
     Route: 048
  2. PREMARIN [Suspect]
     Indication: DYSPAREUNIA

REACTIONS (1)
  - Drug ineffective [Unknown]
